FAERS Safety Report 9000675 (Version 2)
Quarter: 2013Q1

REPORT INFORMATION
  Report Type: Spontaneous
  Country: CN (occurrence: None)
  Receive Date: 20121226
  Receipt Date: 20130108
  Transmission Date: 20140127
  Serious: Yes (Hospitalization)
  Sender: FDA-Public Use
  Company Number: DSA_61540_2012

PATIENT
  Age: 68 Year
  Sex: Female

DRUGS (4)
  1. 5-FU [Suspect]
     Indication: COLORECTAL CANCER METASTATIC
     Dosage: EVERY OTHER WEEK INTRAVENOUS BOLUS)
     Route: 040
     Dates: start: 20121120, end: 20121120
  2. BLINDED THERAPY [Suspect]
     Indication: COLORECTAL CANCER METASTATIC
     Dosage: 4 MG/KG; EVERY OTHER WEEK INTRAVENOUST (NOT OTHERWISE SPECIFIED)
     Route: 042
     Dates: start: 20121120, end: 20121120
  3. IRINOTECAN (IRINOTECAN) [Suspect]
     Indication: COLORECTAL CANCER METASTATIC
     Dosage: 180 MG/M2; EVERY OTHER WEEK INTRAVENOS (NOT OTHERWISE SPECIFIED)
     Route: 042
     Dates: start: 20121120, end: 20121120
  4. LEUCOVORIN /00566701/ (LEUCOVORIN-FOLINIC ACID) [Suspect]
     Dosage: 400 MG/M2; EVERY OTHER WEEK INTRAVENOUS (NOT OTHERWISE SPECIFIED)
     Route: 042
     Dates: start: 20121120, end: 20121120

REACTIONS (2)
  - Neutropenia [None]
  - White blood cell count decreased [None]
